FAERS Safety Report 4428534-4 (Version None)
Quarter: 2004Q3

REPORT INFORMATION
  Report Type: 
  Country: None (occurrence: None)
  Receive Date: 20040816
  Receipt Date: 20040802
  Transmission Date: 20050211
  Serious: Yes (Hospitalization)
  Sender: FDA-Public Use
  Company Number: HQWYE843004AUG04

PATIENT
  Age: 66 Year
  Sex: Male

DRUGS (1)
  1. RAPAMUNE [Suspect]
     Indication: PROPHYLAXIS AGAINST TRANSPLANT REJECTION
     Dosage: 5 MG 1 X PER 1 DAY, ORAL
     Route: 048
     Dates: start: 20040126

REACTIONS (5)
  - BLOOD CREATINE INCREASED [None]
  - GANGRENE [None]
  - PERIPHERAL OCCLUSIVE DISEASE [None]
  - TOE AMPUTATION [None]
  - WOUND NECROSIS [None]
